FAERS Safety Report 7501319-8 (Version None)
Quarter: 2011Q2

REPORT INFORMATION
  Report Type: 
  Country: None (occurrence: None)
  Receive Date: 20110524
  Receipt Date: 20110425
  Transmission Date: 20111010
  Serious: Yes (Hospitalization)
  Sender: FDA-Public Use
  Company Number: US-JNJFOC-20100203805

PATIENT
  Sex: Female
  Weight: 8.29 kg

DRUGS (10)
  1. ANTIBIOTICS [Concomitant]
     Indication: INFLAMMATORY BOWEL DISEASE
  2. ELIDEL [Concomitant]
  3. INFLIXIMAB [Suspect]
     Indication: INFLAMMATORY BOWEL DISEASE
     Route: 042
     Dates: start: 20090905, end: 20091112
  4. PREVACID [Concomitant]
  5. FOLATE [Concomitant]
  6. ACETAMINOPHEN [Concomitant]
  7. METHOTREXATE [Suspect]
     Indication: ILL-DEFINED DISORDER
  8. MICONAZOLE [Concomitant]
  9. CLOTRIMAZOLE [Concomitant]
  10. MUPIROCIN [Concomitant]

REACTIONS (1)
  - RESPIRATORY SYNCYTIAL VIRUS BRONCHIOLITIS [None]
